FAERS Safety Report 9735950 (Version 2)
Quarter: 2013Q4

REPORT INFORMATION
  Report Type: Report from Study
  Country: US (occurrence: US)
  Receive Date: 20131206
  Receipt Date: 20131206
  Transmission Date: 20140711
  Serious: Yes (Hospitalization, Other)
  Sender: FDA-Public Use
  Company Number: US-TEVA-440945USA

PATIENT
  Age: 61 Year
  Sex: Male

DRUGS (1)
  1. CLOZAPINE [Suspect]
     Indication: PSYCHOTIC DISORDER
     Route: 048

REACTIONS (12)
  - Acute respiratory failure [Recovered/Resolved]
  - Septic shock [Recovered/Resolved]
  - Hypotension [Recovered/Resolved]
  - Renal failure acute [Recovered/Resolved]
  - Dehydration [Recovered/Resolved]
  - Rhabdomyolysis [Recovered/Resolved]
  - Liver function test abnormal [Recovered/Resolved]
  - Ischaemic hepatitis [Recovered/Resolved]
  - Neuroleptic malignant syndrome [Recovered/Resolved]
  - Hypokalaemia [Recovered/Resolved]
  - Troponin increased [Recovered/Resolved]
  - Dysphagia [Recovered/Resolved]
